FAERS Safety Report 4360755-1 (Version None)
Quarter: 2004Q2

REPORT INFORMATION
  Report Type: 
  Country: None (occurrence: None)
  Receive Date: 20040517
  Receipt Date: 20040512
  Transmission Date: 20050107
  Serious: Yes (Other)
  Sender: FDA-Public Use
  Company Number: 2004212948BR

PATIENT
  Age: 58 Year
  Sex: Female

DRUGS (1)
  1. ALPRAZOLAM [Suspect]
     Indication: INSOMNIA
     Dosage: 0.5 MG, QD, ORAL
     Route: 048
     Dates: start: 20030101, end: 20040426

REACTIONS (14)
  - BURNING SENSATION [None]
  - CHEST PAIN [None]
  - DEPRESSION [None]
  - FIBROMYALGIA [None]
  - GASTRITIS [None]
  - HOMICIDAL IDEATION [None]
  - HYPOTHYROIDISM [None]
  - NERVOUSNESS [None]
  - ORAL DISCOMFORT [None]
  - PAIN IN EXTREMITY [None]
  - PARAESTHESIA [None]
  - PARAESTHESIA ORAL [None]
  - TREATMENT NONCOMPLIANCE [None]
  - TREMOR [None]
